FAERS Safety Report 6790367-1 (Version None)
Quarter: 2010Q2

REPORT INFORMATION
  Report Type: 
  Country: None (occurrence: None)
  Receive Date: 20100624
  Receipt Date: 20100616
  Transmission Date: 20101027
  Serious: Yes (Disabling)
  Sender: FDA-Public Use
  Company Number: JP-ASTRAZENECA-2010SE25101

PATIENT
  Age: 60 Year
  Sex: Female
  Weight: 45 kg

DRUGS (3)
  1. IRESSA [Suspect]
     Indication: NON-SMALL CELL LUNG CANCER
     Route: 048
     Dates: start: 20091001, end: 20100409
  2. ADALAT [Concomitant]
     Indication: HYPERTENSION
     Route: 048
  3. TAKEPRON [Concomitant]
     Indication: REFLUX OESOPHAGITIS
     Route: 048

REACTIONS (1)
  - LEUKOENCEPHALOPATHY [None]
